FAERS Safety Report 9416967 (Version 2)
Quarter: 2013Q3

REPORT INFORMATION
  Report Type: Spontaneous
  Country: US (occurrence: US)
  Receive Date: 20130724
  Receipt Date: 20130814
  Transmission Date: 20140515
  Serious: Yes (Other)
  Sender: FDA-Public Use
  Company Number: US-TEVA-420874USA

PATIENT
  Age: 26 Year
  Sex: Female
  Weight: 60.38 kg

DRUGS (3)
  1. PARAGARD 380A [Suspect]
     Indication: CONTRACEPTION
     Route: 015
     Dates: start: 20130418, end: 20130711
  2. PRENATAL VITAMINS [Concomitant]
  3. ONE A DAY VITAMIN [Concomitant]

REACTIONS (6)
  - Device dislocation [Recovered/Resolved]
  - Metrorrhagia [Unknown]
  - Headache [Unknown]
  - Nausea [Unknown]
  - Muscle spasms [Unknown]
  - Metrorrhagia [Recovered/Resolved]
